FAERS Safety Report 5398722-1 (Version None)
Quarter: 2007Q3

REPORT INFORMATION
  Report Type: 
  Country: None (occurrence: None)
  Receive Date: 20070726
  Receipt Date: 20060605
  Transmission Date: 20080115
  Serious: No
  Sender: FDA-Public Use
  Company Number: US-AMGEN-KDL186766

PATIENT
  Sex: Female
  Weight: 68.1 kg

DRUGS (3)
  1. PROCRIT [Suspect]
     Indication: PRE-EXISTING DISEASE
     Route: 058
     Dates: start: 20060511, end: 20060525
  2. PEG-INTRON [Concomitant]
     Route: 058
     Dates: start: 20050801, end: 20060527
  3. RIBAVIRIN [Concomitant]
     Dates: start: 20050801, end: 20060527

REACTIONS (9)
  - BLOOD PRESSURE INCREASED [None]
  - CONDITION AGGRAVATED [None]
  - HEADACHE [None]
  - HYPOAESTHESIA [None]
  - PAIN IN EXTREMITY [None]
  - PARAESTHESIA [None]
  - RASH PRURITIC [None]
  - VARICOSE VEIN [None]
  - VEIN PAIN [None]
